FAERS Safety Report 6970498-3 (Version None)
Quarter: 2010Q3

REPORT INFORMATION
  Report Type: 
  Country: None (occurrence: None)
  Receive Date: 20100903
  Receipt Date: 20100818
  Transmission Date: 20110219
  Serious: Yes (Hospitalization)
  Sender: FDA-Public Use
  Company Number: 2010AP001774

PATIENT
  Age: 88 Year
  Sex: Female

DRUGS (4)
  1. OMEPRAZOLE [Suspect]
     Dosage: 20 MG; PO, 20 MG; CAP; PO
     Route: 048
     Dates: start: 20100804, end: 20100804
  2. ASPIRIN [Concomitant]
  3. FUROSEMIDE [Concomitant]
  4. POTASSIUM CHLORIDE [Concomitant]

REACTIONS (4)
  - CONJUNCTIVITIS [None]
  - OEDEMA MOUTH [None]
  - ORAL DISORDER [None]
  - STEVENS-JOHNSON SYNDROME [None]
